FAERS Safety Report 7323009-7 (Version None)
Quarter: 2011Q1

REPORT INFORMATION
  Report Type: 
  Country: None (occurrence: None)
  Receive Date: 20110301
  Receipt Date: 20110224
  Transmission Date: 20110831
  Serious: No
  Sender: FDA-Public Use
  Company Number: PHHY2011US15706

PATIENT
  Sex: Male

DRUGS (3)
  1. GLEEVEC [Suspect]
     Dates: start: 20100305, end: 20101001
  2. SPRYCEL [Concomitant]
     Dates: start: 20100526, end: 20110113
  3. TASIGNA [Suspect]
     Indication: CHRONIC MYELOID LEUKAEMIA
     Dosage: 200 MG, BID
     Route: 048
     Dates: start: 20101018

REACTIONS (1)
  - EATING DISORDER [None]
